FAERS Safety Report 17801980 (Version 1)
Quarter: 2020Q2

REPORT INFORMATION
  Report Type: Spontaneous
  Country: US (occurrence: US)
  Receive Date: 20200519
  Receipt Date: 20200519
  Transmission Date: 20200714
  Serious: No
  Sender: FDA-Public Use
  Company Number: US-TEVA-2020-US-1236184

PATIENT
  Age: 67 Year
  Sex: Male

DRUGS (1)
  1. LORAZEPAM TEVA [Suspect]
     Active Substance: LORAZEPAM
     Indication: INSOMNIA
     Dosage: PATIENT TAKE ONE QUARTER OF THE TABLET
     Route: 065
     Dates: start: 20200504

REACTIONS (7)
  - Wrong technique in product usage process [Unknown]
  - Product substitution issue [Unknown]
  - Feeling abnormal [Unknown]
  - Disorientation [Unknown]
  - Product solubility abnormal [Unknown]
  - Product quality issue [Unknown]
  - Headache [Unknown]

NARRATIVE: CASE EVENT DATE: 202005
